FAERS Safety Report 21983734 (Version 1)
Quarter: 2023Q1

REPORT INFORMATION
  Report Type: Spontaneous
  Country: US (occurrence: US)
  Receive Date: 20230213
  Receipt Date: 20230213
  Transmission Date: 20230418
  Serious: No
  Sender: FDA-Public Use
  Company Number: US-SA-SAC20230207001752

PATIENT
  Age: 58 Year
  Sex: Female

DRUGS (2)
  1. CEREZYME [Suspect]
     Active Substance: IMIGLUCERASE
     Indication: Pulmonary arterial hypertension
     Dosage: 5600 IU, QOW
     Route: 042
     Dates: start: 202001
  2. TYVASO [Suspect]
     Active Substance: TREPROSTINIL
     Dosage: 80 UG, QID
     Route: 065

REACTIONS (2)
  - Cough [Unknown]
  - Product use in unapproved indication [Unknown]

NARRATIVE: CASE EVENT DATE: 20200101
